FAERS Safety Report 16536977 (Version 2)
Quarter: 2019Q3

REPORT INFORMATION
  Report Type: Spontaneous
  Country: DE (occurrence: DE)
  Receive Date: 20190707
  Receipt Date: 20190707
  Transmission Date: 20191004
  Serious: Yes (Hospitalization, Other)
  Sender: FDA-Public Use
  Company Number: PHHY2019DE151611

PATIENT
  Age: 59 Year
  Sex: Female
  Weight: 71 kg

DRUGS (4)
  1. CIPROFLOXACIN 1A PHARMA [Suspect]
     Active Substance: CIPROFLOXACIN
     Indication: PRODUCT USED FOR UNKNOWN INDICATION
     Dosage: 250 MG, UNK (80 TABLETTEN CIPROFLOXAXIN)
     Route: 048
  2. CIPROFLOXACIN 1A PHARMA [Suspect]
     Active Substance: CIPROFLOXACIN
     Dosage: 500 MG, UNK (80 TABLETTEN CIPROFLOXAXIN)
     Route: 048
  3. CEFUROXIME. [Suspect]
     Active Substance: CEFUROXIME
     Indication: PRODUCT USED FOR UNKNOWN INDICATION
     Dosage: 36 X CEFUROXIM
     Route: 048
  4. CLINDAMYCIN. [Suspect]
     Active Substance: CLINDAMYCIN
     Indication: PRODUCT USED FOR UNKNOWN INDICATION
     Dosage: 10 X CLINDAMYCIN
     Route: 048

REACTIONS (38)
  - Anxiety [Recovered/Resolved with Sequelae]
  - Tinnitus [Recovered/Resolved with Sequelae]
  - Kyphoscoliosis [Not Recovered/Not Resolved]
  - Joint range of motion decreased [Not Recovered/Not Resolved]
  - General physical health deterioration [Not Recovered/Not Resolved]
  - Irritable bowel syndrome [Recovered/Resolved with Sequelae]
  - Panic attack [Recovered/Resolved with Sequelae]
  - Myochosis [Recovered/Resolved with Sequelae]
  - Pain [Not Recovered/Not Resolved]
  - Arthropathy [Not Recovered/Not Resolved]
  - Rotator cuff syndrome [Recovered/Resolved with Sequelae]
  - Facet joint syndrome [Recovered/Resolved with Sequelae]
  - Dysbiosis [Recovered/Resolved with Sequelae]
  - Spinal stenosis [Recovered/Resolved with Sequelae]
  - Depression [Recovered/Resolved with Sequelae]
  - Deafness [Recovered/Resolved with Sequelae]
  - Synovial cyst [Not Recovered/Not Resolved]
  - Complex regional pain syndrome [Recovered/Resolved with Sequelae]
  - Diverticulum [Recovered/Resolved with Sequelae]
  - Migraine [Not Recovered/Not Resolved]
  - Cervical radiculopathy [Recovered/Resolved with Sequelae]
  - Impaired work ability [Unknown]
  - Abdominal discomfort [Recovered/Resolved with Sequelae]
  - Tendon rupture [Recovered/Resolved with Sequelae]
  - Hypoaesthesia [Recovered/Resolved with Sequelae]
  - Osteoarthritis [Recovered/Resolved with Sequelae]
  - Sensory disturbance [Recovered/Resolved with Sequelae]
  - Lumbosacral radiculopathy [Recovered/Resolved with Sequelae]
  - Arthropathy [Recovered/Resolved with Sequelae]
  - Anxiety disorder [Recovered/Resolved with Sequelae]
  - Fatigue [Not Recovered/Not Resolved]
  - Hyperacusis [Not Recovered/Not Resolved]
  - Foot fracture [Recovered/Resolved with Sequelae]
  - Cartilage injury [Not Recovered/Not Resolved]
  - Muscle spasms [Not Recovered/Not Resolved]
  - Sciatica [Not Recovered/Not Resolved]
  - Limb discomfort [Recovered/Resolved with Sequelae]
  - Back pain [Not Recovered/Not Resolved]

NARRATIVE: CASE EVENT DATE: 2010
